FAERS Safety Report 6593400-5 (Version None)
Quarter: 2010Q1

REPORT INFORMATION
  Report Type: 
  Country: None (occurrence: None)
  Receive Date: 20100222
  Receipt Date: 20090403
  Transmission Date: 20100710
  Serious: Yes (Other)
  Sender: FDA-Public Use
  Company Number: US-BRISTOL-MYERS SQUIBB COMPANY-14564520

PATIENT
  Sex: Female

DRUGS (4)
  1. ORENCIA [Suspect]
     Indication: RHEUMATOID ARTHRITIS
     Dosage: NO OF INFUSION: 3.  RECOVERY THE PATIENT HAD AN INFUSION ON 04/02/2009 WITHOUT INCIDENT.
     Route: 042
  2. TOPROL-XL [Concomitant]
     Indication: HYPERTENSION
  3. CARDIZEM [Concomitant]
     Indication: HYPERTENSION
  4. HYDRALAZINE HCL [Concomitant]
     Indication: HYPERTENSION

REACTIONS (1)
  - BLOOD PRESSURE INCREASED [None]
